FAERS Safety Report 7170317-9 (Version None)
Quarter: 2010Q4

REPORT INFORMATION
  Report Type: 
  Country: None (occurrence: None)
  Receive Date: 20101123
  Receipt Date: 20101006
  Transmission Date: 20110411
  Serious: No
  Sender: FDA-Public Use
  Company Number: 019249

PATIENT
  Sex: Male
  Weight: 86.2 kg

DRUGS (2)
  1. CIMZIA [Suspect]
     Indication: RHEUMATOID ARTHRITIS
     Dosage: (400 MG 1X/2 WEEKS, LAST ONCE TWO WEEKS, DOSE WILL GO TO ONCE MONTHLY SUBCUTANEOUS)
     Route: 058
     Dates: start: 20100923
  2. PREDNISONE [Concomitant]

REACTIONS (4)
  - BLOOD PRESSURE INCREASED [None]
  - DIZZINESS [None]
  - INSOMNIA [None]
  - NAUSEA [None]
